FAERS Safety Report 17845840 (Version 1)
Quarter: 2020Q2

REPORT INFORMATION
  Report Type: Report from Study
  Country: CA (occurrence: CA)
  Receive Date: 20200601
  Receipt Date: 20200601
  Transmission Date: 20200714
  Serious: Yes (Other)
  Sender: FDA-Public Use
  Company Number: CA-JNJFOC-20191211048

PATIENT
  Age: 73 Year
  Sex: Female
  Weight: 74.84 kg

DRUGS (3)
  1. PREDNISONE. [Suspect]
     Active Substance: PREDNISONE
     Route: 065
  2. STELARA [Suspect]
     Active Substance: USTEKINUMAB
     Indication: PSORIATIC ARTHROPATHY
     Route: 058
     Dates: start: 20180228
  3. PREDNISONE. [Suspect]
     Active Substance: PREDNISONE
     Dates: start: 20191207

REACTIONS (7)
  - Rash pruritic [Recovered/Resolved]
  - Contusion [Unknown]
  - Irritability [Unknown]
  - Knee arthroplasty [Unknown]
  - Swelling face [Unknown]
  - Insomnia [Unknown]
  - Peripheral swelling [Unknown]

NARRATIVE: CASE EVENT DATE: 20191128
